FAERS Safety Report 16928809 (Version 1)
Quarter: 2019Q4

REPORT INFORMATION
  Report Type: Spontaneous
  Country: FI (occurrence: FI)
  Receive Date: 20191017
  Receipt Date: 20191017
  Transmission Date: 20200122
  Serious: Yes (Hospitalization)
  Sender: FDA-Public Use
  Company Number: FI-TEVA-2019-FI-1122448

PATIENT
  Age: 61 Year
  Sex: Male

DRUGS (8)
  1. CEFUROXIME. [Concomitant]
     Active Substance: CEFUROXIME
     Dosage: POWDER FOR SOLUTION/SUSPENSION FOR INJECTION/INFUSION
     Dates: start: 20190816, end: 20190821
  2. AMOXICILLIN TRIHYDRATE [Concomitant]
     Active Substance: AMOXICILLIN
     Dates: start: 20190822, end: 20190825
  3. ATORVASTATIN [Concomitant]
     Active Substance: ATORVASTATIN
  4. LINATIL COMP [Concomitant]
     Active Substance: ENALAPRIL MALEATE\HYDROCHLOROTHIAZIDE
  5. DOXIMED [Suspect]
     Active Substance: DOXYCYCLINE
     Dosage: 150,MG,DAILY
     Route: 048
     Dates: start: 20190817, end: 20190825
  6. XATRAL CR [Concomitant]
  7. AMLODIPINE [Concomitant]
     Active Substance: AMLODIPINE BESYLATE
  8. PANADOL FORTE [Concomitant]
     Indication: PYREXIA
     Dosage: ,,AS NECESSARY

REACTIONS (2)
  - Anuria [Recovered/Resolved]
  - Prostatism [Recovered/Resolved]

NARRATIVE: CASE EVENT DATE: 20190817
